FAERS Safety Report 5401250-8 (Version None)
Quarter: 2007Q3

REPORT INFORMATION
  Report Type: 
  Country: None (occurrence: None)
  Receive Date: 20070731
  Receipt Date: 20070725
  Transmission Date: 20080115
  Serious: Yes (Life-Threatening, Hospitalization)
  Sender: FDA-Public Use
  Company Number: FR-AVENTIS-200712412FR

PATIENT
  Age: 82 Year
  Sex: Female

DRUGS (10)
  1. RIFADIN [Suspect]
     Indication: OSTEITIS
     Route: 042
     Dates: end: 20070628
  2. VANCOMYCIN [Suspect]
     Indication: OSTEITIS
     Route: 042
     Dates: end: 20070628
  3. LANTUS [Concomitant]
     Indication: DIABETES MELLITUS
     Route: 058
  4. LASILIX                            /00032601/ [Concomitant]
     Indication: DRUG USE FOR UNKNOWN INDICATION
  5. MODOPAR [Concomitant]
     Indication: DRUG USE FOR UNKNOWN INDICATION
  6. PLAVIX [Concomitant]
     Indication: DRUG USE FOR UNKNOWN INDICATION
  7. PREVISCAN                          /00789001/ [Concomitant]
     Indication: DRUG USE FOR UNKNOWN INDICATION
  8. ATORVASTATIN CALCIUM [Concomitant]
     Indication: DRUG USE FOR UNKNOWN INDICATION
  9. CARDENSIEL [Concomitant]
     Indication: DRUG USE FOR UNKNOWN INDICATION
  10. HEPARIN [Concomitant]
     Route: 042

REACTIONS (2)
  - ANAEMIA [None]
  - THROMBOCYTOPENIA [None]
